FAERS Safety Report 10009538 (Version 1)
Quarter: 2014Q1

REPORT INFORMATION
  Report Type: Spontaneous
  Country: US (occurrence: US)
  Receive Date: 20140312
  Receipt Date: 20140312
  Transmission Date: 20141002
  Serious: No
  Sender: FDA-Public Use
  Company Number: US-INCYTE CORPORATION-2012IN001950

PATIENT
  Sex: Female

DRUGS (8)
  1. JAKAFI [Suspect]
     Indication: MYELOFIBROSIS
     Dosage: 20 MG, QD
     Route: 048
     Dates: end: 2012
  2. JAKAFI [Suspect]
     Dosage: 20 MG, QOD
     Route: 048
     Dates: start: 2012
  3. ASPIRIN [Concomitant]
     Dosage: 81 MG, UNK
  4. FOLIC ACID [Concomitant]
  5. FUROSEMIDE [Concomitant]
  6. LEVOTHYROXINE [Concomitant]
  7. METOPROLOL [Concomitant]
  8. METAZOLINE [Concomitant]

REACTIONS (3)
  - Gout [Unknown]
  - Hypoaesthesia [Unknown]
  - Pain [Unknown]
